FAERS Safety Report 8425964-0 (Version None)
Quarter: 2012Q2

REPORT INFORMATION
  Report Type: 
  Country: None (occurrence: None)
  Receive Date: 20120611
  Receipt Date: 20120605
  Transmission Date: 20120825
  Serious: Yes (Death, Other)
  Sender: FDA-Public Use
  Company Number: JP-JNJFOC-20091203082

PATIENT
  Sex: Female
  Weight: 51 kg

DRUGS (30)
  1. ADEROXAL [Concomitant]
     Indication: PROPHYLAXIS
     Route: 048
     Dates: start: 20090716
  2. GASMOTIN [Concomitant]
     Route: 048
     Dates: start: 20090813, end: 20090819
  3. ZANTAC [Concomitant]
     Indication: MALIGNANT PERITONEAL NEOPLASM
     Route: 042
     Dates: start: 20090723, end: 20090907
  4. FAMOTIDINE [Concomitant]
     Route: 048
     Dates: start: 20090730, end: 20090812
  5. POTASSIUM CHLORIDE [Concomitant]
     Dosage: SOLDEM 3AG
     Route: 042
     Dates: start: 20090722, end: 20090725
  6. TPN ELECTROLYTES IN PLASTIC CONTAINER [Concomitant]
     Route: 042
     Dates: start: 20090911
  7. LANSOPRAZOLE [Concomitant]
     Route: 048
     Dates: start: 20090820
  8. LASIX [Concomitant]
     Route: 042
     Dates: start: 20090910, end: 20090917
  9. ZOLPIDEM [Concomitant]
     Indication: PROPHYLAXIS
     Route: 048
  10. DECADRON [Concomitant]
     Indication: PROPHYLAXIS
     Route: 042
     Dates: start: 20090803, end: 20090909
  11. ZOFRAN [Concomitant]
     Indication: PROPHYLAXIS
     Route: 048
  12. AZUNOL [Concomitant]
     Indication: PROPHYLAXIS
     Route: 049
     Dates: start: 20090716
  13. DECADRON [Concomitant]
     Route: 042
     Dates: start: 20090716, end: 20090814
  14. POTASSIUM CHLORIDE [Concomitant]
     Route: 042
     Dates: start: 20090731, end: 20090910
  15. PRIMPERAN TAB [Concomitant]
     Route: 042
     Dates: start: 20090731
  16. HEAVY MAGNESIUM OXIDE [Concomitant]
     Indication: PROPHYLAXIS
     Route: 048
  17. NAPROXEN [Concomitant]
     Indication: PROPHYLAXIS
     Route: 048
     Dates: start: 20090723
  18. SUCRALFATE [Concomitant]
     Route: 048
     Dates: start: 20090810
  19. IRON SUCROSE [Concomitant]
     Route: 042
     Dates: start: 20090829
  20. DOXORUBICIN HCL [Suspect]
     Dosage: CYCLE 1
     Route: 042
     Dates: start: 20090717, end: 20090717
  21. NAPROXEN [Concomitant]
     Indication: MALIGNANT PERITONEAL NEOPLASM
     Route: 048
     Dates: start: 20090723
  22. PREDNISOLONE [Concomitant]
     Indication: PROPHYLAXIS
     Route: 048
     Dates: start: 20090916
  23. ALBUMIN (HUMAN) [Concomitant]
     Route: 042
     Dates: start: 20090807, end: 20090809
  24. DOXORUBICIN HCL [Suspect]
     Indication: MALIGNANT PERITONEAL NEOPLASM
     Dosage: CYCLE 2
     Route: 042
     Dates: start: 20090814, end: 20090814
  25. LASIX [Concomitant]
     Indication: MALIGNANT PERITONEAL NEOPLASM
     Route: 042
     Dates: start: 20090722, end: 20090907
  26. SODIUM CHLORIDE [Concomitant]
     Route: 042
     Dates: start: 20090725, end: 20090910
  27. HIRUDOID (HEPARINOID) [Concomitant]
     Route: 061
     Dates: start: 20090716, end: 20090819
  28. HIRUDOID (HEPARINOID) [Concomitant]
     Indication: PROPHYLAXIS
     Route: 061
     Dates: start: 20090728
  29. DECADRON [Concomitant]
     Route: 042
     Dates: start: 20090725, end: 20090802
  30. RAMELTEON [Concomitant]
     Route: 042
     Dates: start: 20090725, end: 20090730

REACTIONS (2)
  - LUNG DISORDER [None]
  - MALIGNANT PERITONEAL NEOPLASM [None]
